FAERS Safety Report 7110105-2 (Version None)
Quarter: 2010Q4

REPORT INFORMATION
  Report Type: 
  Country: None (occurrence: None)
  Receive Date: 20101116
  Receipt Date: 20101116
  Transmission Date: 20110411
  Serious: Yes (Other)
  Sender: FDA-Public Use
  Company Number: None

PATIENT
  Sex: Male
  Weight: 68.0396 kg

DRUGS (1)
  1. VYVANSE [Suspect]
     Indication: DISTURBANCE IN ATTENTION
     Dosage: 1XDAY IN MORNING PO
     Route: 048
     Dates: start: 20101104, end: 20101109

REACTIONS (3)
  - AGITATION [None]
  - HYPERSENSITIVITY [None]
  - VISUAL IMPAIRMENT [None]
